FAERS Safety Report 22286615 (Version 1)
Quarter: 2023Q2

REPORT INFORMATION
  Report Type: Spontaneous
  Country: GB (occurrence: GB)
  Receive Date: 20230505
  Receipt Date: 20230505
  Transmission Date: 20230721
  Serious: Yes (Disabling)
  Sender: FDA-Public Use
  Company Number: GB-MHRA-MED-202304191508388950-HVBYZ

PATIENT
  Age: 71 Year
  Sex: Male

DRUGS (2)
  1. TAMSULOSIN [Suspect]
     Active Substance: TAMSULOSIN
     Indication: Prostatomegaly
     Dosage: 1 DOSAGE FORM, ONCE A DAY,0.5MG/0.4MG
     Route: 065
     Dates: start: 202212, end: 202301
  2. DUTASTERIDE [Suspect]
     Active Substance: DUTASTERIDE
     Indication: Prostatomegaly
     Dosage: 1 DOSAGE FORM, ONCE A DAY,0.5MG/0.4MG
     Route: 065
     Dates: start: 202212, end: 202301

REACTIONS (3)
  - Dyspnoea [Recovered/Resolved]
  - Fatigue [Recovered/Resolved]
  - Rash erythematous [Recovered/Resolved]

NARRATIVE: CASE EVENT DATE: 20221201
